FAERS Safety Report 14506388 (Version 1)
Quarter: 2018Q1

REPORT INFORMATION
  Report Type: Spontaneous
  Country: US (occurrence: US)
  Receive Date: 20180208
  Receipt Date: 20180208
  Transmission Date: 20180509
  Serious: Yes (Other)
  Sender: FDA-Public Use
  Company Number: US-RISING PHARMACEUTICALS, INC.-2017RIS00387

PATIENT
  Age: 67 Year
  Sex: Female
  Weight: 47.62 kg

DRUGS (3)
  1. ACTONEL [Concomitant]
     Active Substance: RISEDRONATE SODIUM
  2. CIPROFLOXACIN. [Suspect]
     Active Substance: CIPROFLOXACIN
     Indication: OCULAR HYPERAEMIA
     Dosage: 2 DROP, 2X/DAY
     Route: 046
     Dates: start: 20171116, end: 20171117
  3. CIPROFLOXACIN. [Suspect]
     Active Substance: CIPROFLOXACIN
     Indication: VIRAL INFECTION
     Dosage: 1 DROP, 2X/DAY
     Route: 047
     Dates: start: 20171117, end: 20171117

REACTIONS (1)
  - Drug hypersensitivity [Recovered/Resolved]

NARRATIVE: CASE EVENT DATE: 20171116
